FAERS Safety Report 11626607 (Version 8)
Quarter: 2015Q4

REPORT INFORMATION
  Report Type: Spontaneous
  Country: JP (occurrence: JP)
  Receive Date: 20151013
  Receipt Date: 20151216
  Transmission Date: 20160304
  Serious: Yes (Death, Other)
  Sender: FDA-Public Use
  Company Number: JP-OTSUKA-2015_011471

PATIENT
  Age: 57 Year
  Sex: Male

DRUGS (34)
  1. CO-DIOVAN [Concomitant]
     Active Substance: HYDROCHLOROTHIAZIDE\VALSARTAN
     Indication: PRODUCT USED FOR UNKNOWN INDICATION
     Dosage: 1 TAB, QD
     Route: 048
  2. CO-DIOVAN [Concomitant]
     Active Substance: HYDROCHLOROTHIAZIDE\VALSARTAN
     Dosage: 1 TAB, QD
     Route: 048
     Dates: start: 20150903
  3. FLUNITRAZEPAM [Concomitant]
     Active Substance: FLUNITRAZEPAM
     Dosage: UNK, 1MG/DAY
     Route: 048
     Dates: start: 20150903
  4. ABILIFY MAINTENA [Suspect]
     Active Substance: ARIPIPRAZOLE
     Dosage: 400MG, QM
     Route: 030
     Dates: start: 20150929, end: 20150929
  5. ABILIFY [Concomitant]
     Active Substance: ARIPIPRAZOLE
     Indication: SCHIZOPHRENIA
     Dosage: UNK, 12MG/DAY
     Route: 048
     Dates: start: 20150723, end: 20150723
  6. CO-DIOVAN [Concomitant]
     Active Substance: HYDROCHLOROTHIAZIDE\VALSARTAN
     Dosage: 1 TAB, QD
     Route: 048
     Dates: start: 20150723
  7. MEILAX [Concomitant]
     Active Substance: ETHYL LOFLAZEPATE
     Dosage: UNK, 1MG/DAY
     Route: 048
     Dates: start: 20150928, end: 20150929
  8. FLUNITRAZEPAM [Concomitant]
     Active Substance: FLUNITRAZEPAM
     Dosage: UNK, 1MG/DAY
     Route: 048
     Dates: start: 20150723
  9. KAMAG G [Concomitant]
     Active Substance: MAGNESIUM OXIDE
     Indication: PRODUCT USED FOR UNKNOWN INDICATION
     Dosage: 500MGX2, AS NEEDED
     Route: 048
  10. HIRNAMIN [Suspect]
     Active Substance: PHENOTHIAZINE
     Indication: AGITATION
     Dosage: 25 MG, TID
     Route: 048
     Dates: start: 20150928, end: 20150929
  11. HIRNAMIN [Suspect]
     Active Substance: PHENOTHIAZINE
     Indication: AGGRESSION
  12. ABILIFY [Concomitant]
     Active Substance: ARIPIPRAZOLE
     Dosage: UNK, 12MG/DAY
     Route: 048
     Dates: start: 20150928, end: 20150929
  13. RISPERIDONE. [Concomitant]
     Active Substance: RISPERIDONE
     Indication: PRODUCT USED FOR UNKNOWN INDICATION
     Dosage: 2MG, AS NEEDED
     Route: 048
  14. MEILAX [Concomitant]
     Active Substance: ETHYL LOFLAZEPATE
     Dosage: UNK, 1MG/DAY
     Route: 048
     Dates: start: 20150806
  15. FLUNITRAZEPAM [Concomitant]
     Active Substance: FLUNITRAZEPAM
     Indication: PRODUCT USED FOR UNKNOWN INDICATION
     Dosage: UNK, 1MG/DAY
     Route: 048
  16. FLUNITRAZEPAM [Concomitant]
     Active Substance: FLUNITRAZEPAM
     Dosage: UNK, 1MG/DAY
     Route: 048
     Dates: start: 20150928, end: 20150929
  17. KAMAG G [Concomitant]
     Active Substance: MAGNESIUM OXIDE
     Dosage: UNK, PRN
     Route: 048
  18. HIRNAMIN [Suspect]
     Active Substance: PHENOTHIAZINE
     Indication: AGITATION
     Dosage: 50 MG/DAY
     Route: 030
     Dates: start: 20150927
  19. RISPERDAL [Concomitant]
     Active Substance: RISPERIDONE
     Indication: PRODUCT USED FOR UNKNOWN INDICATION
     Dosage: UNK, 37.5MG/DAY
     Route: 030
  20. FLUNITRAZEPAM [Concomitant]
     Active Substance: FLUNITRAZEPAM
     Dosage: UNK, 1MG/DAY
     Route: 048
     Dates: start: 20150806
  21. ABILIFY MAINTENA [Suspect]
     Active Substance: ARIPIPRAZOLE
     Indication: SCHIZOPHRENIA
     Dosage: 400MG, QM
     Route: 030
     Dates: start: 20150806, end: 20151001
  22. ABILIFY MAINTENA [Suspect]
     Active Substance: ARIPIPRAZOLE
     Dosage: 300MG, QM
     Route: 030
     Dates: start: 20150903, end: 20150903
  23. HIRNAMIN [Suspect]
     Active Substance: PHENOTHIAZINE
     Indication: AGGRESSION
  24. AKINETON                           /00079503/ [Concomitant]
     Active Substance: BIPERIDEN LACTATE
     Indication: PRODUCT USED FOR UNKNOWN INDICATION
     Dosage: UNK
     Route: 065
  25. CO-DIOVAN [Concomitant]
     Active Substance: HYDROCHLOROTHIAZIDE\VALSARTAN
     Dosage: 1 TAB, QD
     Route: 048
  26. CO-DIOVAN [Concomitant]
     Active Substance: HYDROCHLOROTHIAZIDE\VALSARTAN
     Dosage: 1 DF, QD
     Dates: start: 20150928, end: 20150929
  27. MEILAX [Concomitant]
     Active Substance: ETHYL LOFLAZEPATE
     Indication: PRODUCT USED FOR UNKNOWN INDICATION
     Dosage: UNK, 1MG/DAY
     Route: 048
  28. MEILAX [Concomitant]
     Active Substance: ETHYL LOFLAZEPATE
     Dosage: UNK, 1MG/DAY
     Route: 048
  29. ABILIFY [Concomitant]
     Active Substance: ARIPIPRAZOLE
     Dosage: UNK, 12MG/DAY
     Route: 048
     Dates: start: 20150806, end: 20150806
  30. RISPERDAL [Concomitant]
     Active Substance: RISPERIDONE
     Dosage: UNK, 25MG/DAY
     Route: 048
     Dates: start: 20150723
  31. MEILAX [Concomitant]
     Active Substance: ETHYL LOFLAZEPATE
     Dosage: UNK, 1MG/DAY
     Route: 048
     Dates: start: 20150903
  32. RISPERDAL [Concomitant]
     Active Substance: RISPERIDONE
     Dosage: UNK, 37.5MG/DAY
     Route: 048
  33. MEILAX [Concomitant]
     Active Substance: ETHYL LOFLAZEPATE
     Dosage: UNK, 1MG/DAY
     Route: 048
     Dates: start: 20150723
  34. FLUNITRAZEPAM [Concomitant]
     Active Substance: FLUNITRAZEPAM
     Dosage: UNK, 1MG/DAY
     Route: 048

REACTIONS (4)
  - Cardiac failure acute [Fatal]
  - Agitation [Unknown]
  - Epilepsy [Unknown]
  - Sudden death [Fatal]

NARRATIVE: CASE EVENT DATE: 20151001
